FAERS Safety Report 14258830 (Version 1)
Quarter: 2017Q4

REPORT INFORMATION
  Report Type: Spontaneous
  Country: US (occurrence: US)
  Receive Date: 20171206
  Receipt Date: 20171206
  Transmission Date: 20180321
  Serious: Yes (Disabling, Other)
  Sender: FDA-Public Use
  Company Number: None

PATIENT
  Sex: Female
  Weight: 79.2 kg

DRUGS (6)
  1. EFFEXOR [Concomitant]
     Active Substance: VENLAFAXINE HYDROCHLORIDE
  2. AMOURTHYROID [Concomitant]
  3. GABAPENTIN. [Concomitant]
     Active Substance: GABAPENTIN
  4. TRILEPTAL [Concomitant]
     Active Substance: OXCARBAZEPINE
  5. ABILIFY [Suspect]
     Active Substance: ARIPIPRAZOLE
     Indication: BIPOLAR DISORDER
     Dosage: ?          QUANTITY:1 TABLET(S);?
     Route: 048
     Dates: start: 20150902, end: 20170915
  6. CURCUMIN [Concomitant]
     Active Substance: CURCUMIN

REACTIONS (5)
  - Tardive dyskinesia [None]
  - Impaired driving ability [None]
  - Drug withdrawal syndrome [None]
  - Quality of life decreased [None]
  - Condition aggravated [None]

NARRATIVE: CASE EVENT DATE: 20170902
